FAERS Safety Report 9145746 (Version 1)
Quarter: 2013Q1

REPORT INFORMATION
  Report Type: Report from Study
  Country: US (occurrence: US)
  Receive Date: 20130307
  Receipt Date: 20130307
  Transmission Date: 20140127
  Serious: Yes (Hospitalization, Other)
  Sender: FDA-Public Use
  Company Number: PHHY2013US021849

PATIENT
  Age: 90 Year
  Sex: Female

DRUGS (9)
  1. EVEROLIMUS [Suspect]
     Indication: METASTATIC RENAL CELL CARCINOMA
     Dosage: 5 MG, QD
     Route: 048
     Dates: start: 20120223
  2. AMLODIPINE [Concomitant]
     Indication: HYPERTENSION
     Dosage: 5 MG, UNK
     Route: 048
     Dates: start: 20110313
  3. OXYBUTYNIN CHLORIDE [Concomitant]
     Indication: HYPERTONIC BLADDER
     Dosage: 5 MG, UNK
     Route: 048
     Dates: start: 2010
  4. PANTOPRAZOLE [Concomitant]
     Indication: GASTROOESOPHAGEAL REFLUX DISEASE
     Dosage: 20 MG, UNK
     Route: 048
     Dates: start: 20110419
  5. COMPAZINE [Concomitant]
     Indication: NAUSEA
     Dosage: 10 MG, UNK
     Route: 048
     Dates: start: 20110310
  6. THYROXINE [Concomitant]
     Dosage: 50 UG, UNK
     Dates: start: 2005
  7. PRESERVISION AREDS [Concomitant]
     Dosage: 1 DF, UNK
     Route: 048
     Dates: start: 20020419
  8. IMODIUM [Concomitant]
     Indication: DIARRHOEA
     Dosage: 2 MG, UNK
     Route: 048
     Dates: start: 20120229
  9. LASIX [Concomitant]
     Indication: OEDEMA
     Dosage: UNK
     Dates: start: 20120315

REACTIONS (8)
  - Left ventricular dysfunction [Unknown]
  - Ejection fraction decreased [Unknown]
  - Atelectasis [Recovered/Resolved]
  - Renal failure [Recovering/Resolving]
  - Pneumonia haemophilus [Recovered/Resolved]
  - Dyspnoea [Recovered/Resolved]
  - Cough [Recovered/Resolved]
  - Lung consolidation [Recovered/Resolved]
